FAERS Safety Report 6844489-7 (Version None)
Quarter: 2010Q3

REPORT INFORMATION
  Report Type: 
  Country: None (occurrence: None)
  Receive Date: 20100715
  Receipt Date: 20100705
  Transmission Date: 20110219
  Serious: Yes (Hospitalization)
  Sender: FDA-Public Use
  Company Number: US-JNJFOC-20100703185

PATIENT
  Age: 20 Month
  Sex: Female
  Weight: 10.89 kg

DRUGS (4)
  1. CHILDREN'S TYLENOL SUSPENSION BUBBLEGUM FLAVOR [Suspect]
     Route: 048
  2. CHILDREN'S TYLENOL SUSPENSION BUBBLEGUM FLAVOR [Suspect]
     Indication: PYREXIA
     Route: 048
  3. CHILDREN'S MOTRIN [Suspect]
  4. CHILDREN'S MOTRIN [Suspect]
     Indication: PYREXIA

REACTIONS (6)
  - DECREASED APPETITE [None]
  - DEHYDRATION [None]
  - DRUG INEFFECTIVE [None]
  - PRODUCT QUALITY ISSUE [None]
  - PYREXIA [None]
  - VOMITING [None]
